FAERS Safety Report 15555773 (Version 1)
Quarter: 2018Q4

REPORT INFORMATION
  Report Type: Spontaneous
  Country: JP (occurrence: JP)
  Receive Date: 20181026
  Receipt Date: 20181026
  Transmission Date: 20190205
  Serious: Yes (Hospitalization, Disabling)
  Sender: FDA-Public Use
  Company Number: JP-JNJFOC-20150517739

PATIENT
  Age: 77 Year
  Sex: Male
  Weight: 48 kg

DRUGS (4)
  1. XARELTO [Suspect]
     Active Substance: RIVAROXABAN
     Indication: ATRIAL FIBRILLATION
     Route: 048
     Dates: start: 201311
  2. XARELTO [Suspect]
     Active Substance: RIVAROXABAN
     Indication: ISCHAEMIC STROKE
     Route: 048
     Dates: start: 201311
  3. CILOSTAZOL. [Interacting]
     Active Substance: CILOSTAZOL
     Indication: PRODUCT USED FOR UNKNOWN INDICATION
     Route: 048
     Dates: start: 201311
  4. XARELTO [Suspect]
     Active Substance: RIVAROXABAN
     Indication: ANGINA PECTORIS
     Route: 048
     Dates: start: 201311

REACTIONS (2)
  - Labelled drug-drug interaction medication error [Unknown]
  - Subdural haematoma [Recovered/Resolved with Sequelae]

NARRATIVE: CASE EVENT DATE: 20140824
